FAERS Safety Report 23079686 (Version 1)
Quarter: 2023Q4

REPORT INFORMATION
  Report Type: Spontaneous
  Country: US (occurrence: US)
  Receive Date: 20231018
  Receipt Date: 20231018
  Transmission Date: 20240109
  Serious: Yes (Other)
  Sender: FDA-Public Use
  Company Number: US-002147023-NVSC2023US223097

PATIENT

DRUGS (5)
  1. OCTREOTIDE [Suspect]
     Active Substance: OCTREOTIDE
     Indication: Malignant gastrointestinal obstruction
     Dosage: 300 UG, TID
     Route: 042
  2. OCTREOTIDE [Suspect]
     Active Substance: OCTREOTIDE
  3. OCTREOTIDE [Suspect]
     Active Substance: OCTREOTIDE
  4. DEXAMETHASONE [Concomitant]
     Active Substance: DEXAMETHASONE
     Indication: Malignant gastrointestinal obstruction
     Dosage: 4 MG, BID (AM + MIDDAY)
     Route: 042
  5. METOCLOPRAMIDE [Concomitant]
     Active Substance: METOCLOPRAMIDE
     Indication: Malignant gastrointestinal obstruction
     Dosage: 10 MG, Q6H
     Route: 042

REACTIONS (2)
  - Bradycardia [Recovered/Resolved]
  - Product use in unapproved indication [Unknown]
